FAERS Safety Report 4471261-8 (Version None)
Quarter: 2004Q4

REPORT INFORMATION
  Report Type: 
  Country: None (occurrence: None)
  Receive Date: 20041011
  Receipt Date: 20041004
  Transmission Date: 20050328
  Serious: Yes (Death, Life-Threatening, Hospitalization, Disabling)
  Sender: FDA-Public Use
  Company Number: GB-MERCK-0410GBR00035

PATIENT
  Age: 79 Year
  Sex: Female
  Weight: 57 kg

DRUGS (9)
  1. ALBUTEROL [Concomitant]
     Indication: CHRONIC OBSTRUCTIVE AIRWAYS DISEASE
     Route: 065
     Dates: start: 19990204
  2. ATORVASTATIN CALCIUM [Concomitant]
     Indication: HYPERCHOLESTEROLAEMIA
     Route: 065
     Dates: start: 20040430
  3. DIPYRIDAMOLE [Concomitant]
     Indication: CEREBROVASCULAR ACCIDENT
     Route: 065
     Dates: start: 20030318
  4. INSULIN GLARGINE [Concomitant]
     Indication: DIABETES MELLITUS
     Route: 065
     Dates: start: 20040510
  5. LEVOTHYROXINE SODIUM [Concomitant]
     Route: 065
     Dates: start: 20030711
  6. PREDNISOLONE [Concomitant]
     Indication: POLYMYALGIA
     Route: 065
     Dates: start: 20030729
  7. VIOXX [Suspect]
     Indication: POLYMYALGIA
     Route: 048
     Dates: start: 20040324
  8. TOLBUTAMIDE [Concomitant]
     Indication: DIABETES MELLITUS
     Route: 065
     Dates: start: 20030910
  9. ZOPICLONE [Concomitant]
     Indication: INSOMNIA
     Route: 065
     Dates: start: 20040524

REACTIONS (1)
  - DUODENAL ULCER PERFORATION [None]
